FAERS Safety Report 14872411 (Version 2)
Quarter: 2018Q2

REPORT INFORMATION
  Report Type: Spontaneous
  Country: US (occurrence: US)
  Receive Date: 20180510
  Receipt Date: 20180622
  Transmission Date: 20180711
  Serious: Yes (Other)
  Sender: FDA-Public Use
  Company Number: US-009507513-1805USA000012

PATIENT
  Sex: Male

DRUGS (4)
  1. PHILLIPS LAXATIVE CAPLETS [Concomitant]
     Dosage: UNK
  2. DOK [Concomitant]
     Active Substance: DOCUSATE SODIUM
     Dosage: UNK
  3. SYLATRON [Suspect]
     Active Substance: PEGINTERFERON ALFA-2B
     Dosage: 300 MICROGRAM, WEEKLY
     Route: 058
  4. ACETAMINOPHEN (+) OXYCODONE HYDROCHLORIDE [Concomitant]
     Active Substance: ACETAMINOPHEN\OXYCODONE HYDROCHLORIDE
     Dosage: UNK

REACTIONS (1)
  - Nephrectomy [Unknown]
